FAERS Safety Report 21812951 (Version 1)
Quarter: 2023Q1

REPORT INFORMATION
  Report Type: Spontaneous
  Country: GB (occurrence: GB)
  Receive Date: 20230103
  Receipt Date: 20230103
  Transmission Date: 20230418
  Serious: Yes (Other)
  Sender: FDA-Public Use
  Company Number: None

PATIENT
  Age: 52 Year
  Sex: Female
  Weight: 84 kg

DRUGS (19)
  1. CLARITHROMYCIN [Suspect]
     Active Substance: CLARITHROMYCIN
     Indication: Product used for unknown indication
     Dosage: 500 MILLIGRAM
     Route: 065
  2. Adcal [Concomitant]
     Dosage: 1 DOSAGE FORM, BID
     Route: 065
     Dates: start: 20200514
  3. AMOXICILLIN [Concomitant]
     Active Substance: AMOXICILLIN
     Dosage: 2 DOSAGE FORM, BID (FOR 1 WEEK)
     Route: 065
     Dates: start: 20221229
  4. ATORVASTATIN [Concomitant]
     Active Substance: ATORVASTATIN
     Dosage: 1 DOSAGE FORM, QD(EVERY MORNING)
     Route: 065
     Dates: start: 20200514
  5. BENZYDAMINE HYDROCHLORIDE [Concomitant]
     Active Substance: BENZYDAMINE HYDROCHLORIDE
     Dosage: UNK (USE EVERY 3 HRS)
     Route: 065
     Dates: start: 20221202, end: 20221207
  6. DERMOL [Concomitant]
     Active Substance: BENZALKONIUM CHLORIDE\CHLORHEXIDINE HYDROCHLORIDE\ISOPROPYL MYRISTATE\PARAFFIN
     Dosage: UNK (USE AS DIRECTED)
     Route: 065
     Dates: start: 20221115, end: 20221127
  7. DICLOFENAC DIETHYLAMINE [Concomitant]
     Active Substance: DICLOFENAC DIETHYLAMINE
     Dosage: UNK(APPLY TWICE DAILY)
     Route: 065
     Dates: start: 20200514
  8. DULOXETINE [Concomitant]
     Active Substance: DULOXETINE
     Dosage: 1 DOSAGE FORM, BID
     Route: 065
     Dates: start: 20220516
  9. FAMOTIDINE [Concomitant]
     Active Substance: FAMOTIDINE
     Dosage: 1 DOSAGE FORM, BID
     Route: 065
     Dates: start: 20221115, end: 20221129
  10. GLICLAZIDE [Concomitant]
     Active Substance: GLICLAZIDE
     Dosage: 1 DOSAGE FORM, BID
     Route: 065
     Dates: start: 20220629
  11. INSULIN HUMAN [Concomitant]
     Active Substance: INSULIN HUMAN
     Dosage: UNK(USE AS DIRECTED)
     Route: 065
     Dates: start: 20220908
  12. IBUPROFEN [Concomitant]
     Active Substance: IBUPROFEN
     Dosage: UNK (UP TO 3 TIMES/DAY WITH FOOD. NO MORE THAN 3 IN A DAY  (AS NECESSARY)
     Route: 065
     Dates: start: 20221228
  13. LANSOPRAZOLE [Concomitant]
     Active Substance: LANSOPRAZOLE
     Dosage: 1 DOSAGE FORM, BID
     Route: 065
     Dates: start: 20200514
  14. LEVOFLOXACIN [Concomitant]
     Active Substance: LEVOFLOXACIN
     Dosage: 1 DOSAGE FORM, BID
     Route: 065
     Dates: start: 20221229
  15. METFORMIN [Concomitant]
     Active Substance: METFORMIN HYDROCHLORIDE
     Dosage: 1 DOSAGE FORM, BID
     Route: 065
     Dates: start: 20200514
  16. OTOMIZE [Concomitant]
     Dosage: 1 DOSAGE FORM, TID (IN TO EACH EAR FOR 7/7 )
     Route: 047
     Dates: start: 20221213, end: 20221220
  17. ACETAMINOPHEN [Concomitant]
     Active Substance: ACETAMINOPHEN
     Indication: Pain management
     Dosage: 2 DOSAGE FORM, PRN  (FOUR TIMES DAILY )
     Route: 065
     Dates: start: 20200514
  18. PENICILLIN V [Concomitant]
     Active Substance: PENICILLIN V
     Dosage: 2 DOSAGE FORM, QID
     Route: 065
     Dates: start: 20221121, end: 20221128
  19. TRAMADOL [Concomitant]
     Active Substance: TRAMADOL
     Dosage: UNK(TAKE 1 OR 2 QDS)
     Route: 065
     Dates: start: 20200514

REACTIONS (3)
  - Lip swelling [Recovered/Resolved]
  - Oral discomfort [Recovered/Resolved]
  - Bone pain [Unknown]
